FAERS Safety Report 17933801 (Version 1)
Quarter: 2020Q2

REPORT INFORMATION
  Report Type: Spontaneous
  Country: US (occurrence: US)
  Receive Date: 20200623
  Receipt Date: 20200623
  Transmission Date: 20200714
  Serious: Yes (Other)
  Sender: FDA-Public Use
  Company Number: US-AMGEN-USASP2020098074

PATIENT
  Age: 68 Year
  Sex: Female

DRUGS (1)
  1. EVENITY [Suspect]
     Active Substance: ROMOSOZUMAB-AQQG
     Indication: OSTEOPOROSIS
     Dosage: UNK
     Route: 065
     Dates: start: 20200203

REACTIONS (12)
  - Ear pain [Unknown]
  - Dry eye [Unknown]
  - Lip pain [Unknown]
  - Pelvic fracture [Recovering/Resolving]
  - Fall [Unknown]
  - Eye pain [Unknown]
  - Hip fracture [Unknown]
  - Joint swelling [Unknown]
  - Pain [Not Recovered/Not Resolved]
  - Arthropathy [Not Recovered/Not Resolved]
  - Pain in jaw [Unknown]
  - Lip dry [Unknown]

NARRATIVE: CASE EVENT DATE: 2020
